FAERS Safety Report 5271655-7 (Version None)
Quarter: 2007Q1

REPORT INFORMATION
  Report Type: 
  Country: None (occurrence: None)
  Receive Date: 20070321
  Receipt Date: 20070312
  Transmission Date: 20070707
  Serious: Yes (Hospitalization, Other)
  Sender: FDA-Public Use
  Company Number: US-PFIZER INC-2007019512

PATIENT
  Age: 10 Year
  Sex: Male

DRUGS (2)
  1. GEODON [Suspect]
     Indication: AFFECTIVE DISORDER
  2. CONCERTA [Concomitant]
     Indication: PSYCHOMOTOR HYPERACTIVITY
     Dosage: DAILY DOSE:36MG
     Route: 048

REACTIONS (2)
  - DYSKINESIA [None]
  - HALLUCINATION [None]
